FAERS Safety Report 16843583 (Version 2)
Quarter: 2019Q3

REPORT INFORMATION
  Report Type: Report from Study
  Country: FR (occurrence: FR)
  Receive Date: 20190924
  Receipt Date: 20190930
  Transmission Date: 20191005
  Serious: Yes (Other)
  Sender: FDA-Public Use
  Company Number: FR-ROCHE-2409700

PATIENT
  Age: 60 Year
  Sex: Female
  Weight: 70 kg

DRUGS (6)
  1. LOGIRENE [Concomitant]
     Indication: HYPERTENSION
     Route: 065
     Dates: start: 20190729
  2. LOXEN [NICARDIPINE HYDROCHLORIDE] [Concomitant]
     Active Substance: NICARDIPINE HYDROCHLORIDE
     Indication: HYPERTENSION
     Route: 065
     Dates: start: 20190730
  3. ATEZOLIZUMAB. [Suspect]
     Active Substance: ATEZOLIZUMAB
     Indication: NEOPLASM
     Dosage: DATE OF MOST RECENT DOSE OF THE ATEZOLIZUMAB PRIOR TO THE ONSET OF THE HYPERCALCEMIA: 26/AUG/2019 AT
     Route: 042
     Dates: start: 20190704
  4. RO6874281 (FAP IL2V MAB) [Suspect]
     Active Substance: SIMLUKAFUSP ALFA
     Indication: NEOPLASM
     Dosage: DATE OF MOST RECENT DOSE OF THE RO6874281 PRIOR TO THE ONSET OF THE HYPERCALCEMIA: 26/AUG/2019 AT 16
     Route: 042
     Dates: start: 20190704
  5. POLARAMINE [Concomitant]
     Active Substance: DEXCHLORPHENIRAMINE MALEATE
     Route: 065
     Dates: start: 20190805, end: 20190805
  6. DOLIPRANE [Concomitant]
     Active Substance: ACETAMINOPHEN
     Route: 065
     Dates: start: 20190805, end: 20190805

REACTIONS (1)
  - Hypercalcaemia [Recovered/Resolved]

NARRATIVE: CASE EVENT DATE: 20190826
